FAERS Safety Report 11410616 (Version 1)
Quarter: 2015Q3

REPORT INFORMATION
  Report Type: Spontaneous
  Country: US (occurrence: US)
  Receive Date: 20150824
  Receipt Date: 20150824
  Transmission Date: 20151125
  Serious: Yes (Other)
  Sender: FDA-Public Use
  Company Number: US-PFIZER INC-2015276031

PATIENT
  Age: 67 Year
  Sex: Male

DRUGS (2)
  1. SEROQUEL [Interacting]
     Active Substance: QUETIAPINE FUMARATE
     Indication: BIPOLAR DISORDER
     Dosage: 100 MG TABLET, 3 TABLETS EVERY NIGHT
     Route: 048
     Dates: start: 201305
  2. AZULFIDINE [Suspect]
     Active Substance: SULFASALAZINE
     Indication: RHEUMATIC DISORDER
     Dosage: 500 MG, 2 TABLETS EVERY MORNING AND EVERY NIGHT
     Route: 048
     Dates: start: 201507

REACTIONS (2)
  - Drug interaction [Not Recovered/Not Resolved]
  - Drug effect decreased [Not Recovered/Not Resolved]

NARRATIVE: CASE EVENT DATE: 201507
